FAERS Safety Report 7947004-X (Version None)
Quarter: 2011Q4

REPORT INFORMATION
  Report Type: 
  Country: None (occurrence: None)
  Receive Date: 20111129
  Receipt Date: 20111115
  Transmission Date: 20120403
  Serious: Yes (Other)
  Sender: FDA-Public Use
  Company Number: US-ASTRAZENECA-2011SE67737

PATIENT
  Age: 59 Year
  Sex: Female

DRUGS (2)
  1. SYMBICORT [Suspect]
     Indication: CHRONIC OBSTRUCTIVE PULMONARY DISEASE
     Dosage: 160/4.5 MCG, TWO PUFFS DAILY
     Route: 055
     Dates: start: 20100101
  2. SYMBICORT [Suspect]
     Dosage: TWO PUFFS TWICE DAILY
     Route: 055

REACTIONS (8)
  - ORAL CANDIDIASIS [None]
  - PYREXIA [None]
  - URINARY TRACT INFECTION [None]
  - INAPPROPRIATE SCHEDULE OF DRUG ADMINISTRATION [None]
  - DRUG DOSE OMISSION [None]
  - MALAISE [None]
  - BLOOD URINE PRESENT [None]
  - PULMONARY OEDEMA [None]
